FAERS Safety Report 7817215-2 (Version None)
Quarter: 2011Q4

REPORT INFORMATION
  Report Type: 
  Country: None (occurrence: None)
  Receive Date: 20111017
  Receipt Date: 20111013
  Transmission Date: 20120403
  Serious: Yes (Death)
  Sender: FDA-Public Use
  Company Number: PHHY2011BR90823

PATIENT
  Age: 87 Year
  Sex: Male

DRUGS (1)
  1. FORMOTEROL FUMARATE [Suspect]
     Indication: RESPIRATORY FAILURE
     Dosage: 1 DF, BID
     Dates: start: 20110501

REACTIONS (1)
  - RESPIRATORY FAILURE [None]
